FAERS Safety Report 7643650-1 (Version None)
Quarter: 2011Q3

REPORT INFORMATION
  Report Type: 
  Country: None (occurrence: None)
  Receive Date: 20110722
  Receipt Date: 20110708
  Transmission Date: 20111222
  Serious: Yes (Disabling)
  Sender: FDA-Public Use
  Company Number: 2011PV000039

PATIENT
  Age: 60 Year
  Sex: Male

DRUGS (2)
  1. RITUXIMAB [Concomitant]
  2. DEPOCYT [Suspect]
     Indication: WALDENSTROM'S MACROGLOBULINAEMIA
     Dosage: ;INTH
     Dates: start: 20090901, end: 20091101

REACTIONS (8)
  - ASTHENIA [None]
  - URINARY RETENTION [None]
  - PAIN IN EXTREMITY [None]
  - NUCLEAR MAGNETIC RESONANCE IMAGING BRAIN ABNORMAL [None]
  - ERECTILE DYSFUNCTION [None]
  - FAECAL INCONTINENCE [None]
  - CAUDA EQUINA SYNDROME [None]
  - NO THERAPEUTIC RESPONSE [None]
